FAERS Safety Report 7541033-6 (Version None)
Quarter: 2011Q2

REPORT INFORMATION
  Report Type: 
  Country: None (occurrence: None)
  Receive Date: 20110610
  Receipt Date: 20100730
  Transmission Date: 20111010
  Serious: No
  Sender: FDA-Public Use
  Company Number: A0873214A

PATIENT
  Age: 27 Year
  Sex: Female
  Weight: 60 kg

DRUGS (4)
  1. UNKNOWN [Concomitant]
  2. ZITHROMAX [Concomitant]
     Route: 048
     Dates: start: 20100715, end: 20100720
  3. ALTABAX [Suspect]
     Indication: POSTOPERATIVE WOUND INFECTION
     Route: 061
     Dates: start: 20100702
  4. CIPROFLOXACIN HCL [Concomitant]
     Dosage: 500MG TWICE PER DAY
     Route: 048
     Dates: start: 20100720, end: 20100730

REACTIONS (4)
  - APPLICATION SITE VESICLES [None]
  - APPLICATION SITE REACTION [None]
  - DERMATITIS CONTACT [None]
  - APPLICATION SITE ERYTHEMA [None]
